FAERS Safety Report 25764592 (Version 1)
Quarter: 2025Q3

REPORT INFORMATION
  Report Type: Spontaneous
  Country: US (occurrence: US)
  Receive Date: 20250905
  Receipt Date: 20250905
  Transmission Date: 20251021
  Serious: No
  Sender: DOMPE FARMACEUTICI
  Company Number: US-FARMAPROD-202501-0112

PATIENT
  Sex: Female
  Weight: 84.01 kg

DRUGS (34)
  1. OXERVATE [Suspect]
     Active Substance: CENEGERMIN-BKBJ
     Indication: Neurotrophic keratopathy
     Route: 047
     Dates: start: 20241205
  2. OXERVATE [Suspect]
     Active Substance: CENEGERMIN-BKBJ
  3. OXYMETAZOLINE HYDROCHLORIDE [Concomitant]
     Active Substance: OXYMETAZOLINE HYDROCHLORIDE
  4. LOTEMAX [Concomitant]
     Active Substance: LOTEPREDNOL ETABONATE
  5. BLINK TEARS [Concomitant]
     Active Substance: POLYETHYLENE GLYCOL 400
  6. LUMIFY [Concomitant]
     Active Substance: BRIMONIDINE TARTRATE
  7. SYSTANE (HYPROMELLOSE 2910 (4000 MPA.S)) [Concomitant]
     Active Substance: HYPROMELLOSE 2910 (4000 MPA.S)
  8. CALCIUM [Concomitant]
     Active Substance: CALCIUM
  9. FISH OIL [Concomitant]
     Active Substance: FISH OIL
  10. VITAMIN D3 [Concomitant]
     Active Substance: CHOLECALCIFEROL
  11. METHOTREXATE [Concomitant]
     Active Substance: METHOTREXATE
  12. DULOXETINE HYDROCHLORIDE [Concomitant]
     Active Substance: DULOXETINE HYDROCHLORIDE
  13. B12 ACTIVE [Concomitant]
  14. IRON [Concomitant]
     Active Substance: IRON
  15. RYBELSUS [Concomitant]
     Active Substance: SEMAGLUTIDE
  16. FAMOTIDINE [Concomitant]
     Active Substance: FAMOTIDINE
  17. RECLAST [Concomitant]
     Active Substance: ZOLEDRONIC ACID
  18. TOBRAMYCIN [Concomitant]
     Active Substance: TOBRAMYCIN
  19. PREDNISOLONE [Concomitant]
     Active Substance: PREDNISOLONE
  20. MAGNESIUM [Concomitant]
     Active Substance: MAGNESIUM
  21. RANOLAZINE [Concomitant]
     Active Substance: RANOLAZINE
  22. RANOLAZINE [Concomitant]
     Active Substance: RANOLAZINE
  23. XIIDRA [Concomitant]
     Active Substance: LIFITEGRAST
  24. RESTASIS [Concomitant]
     Active Substance: CYCLOSPORINE
  25. NAPROXEN [Concomitant]
     Active Substance: NAPROXEN
  26. LYRICA [Concomitant]
     Active Substance: PREGABALIN
  27. LANSOPRAZOLE [Concomitant]
     Active Substance: LANSOPRAZOLE
  28. LANSOPRAZOLE [Concomitant]
     Active Substance: LANSOPRAZOLE
  29. PREDNISOLONE [Concomitant]
     Active Substance: PREDNISOLONE
  30. REMICADE [Concomitant]
     Active Substance: INFLIXIMAB
  31. CIMZIA [Concomitant]
     Active Substance: CERTOLIZUMAB PEGOL
  32. FLONASE [Concomitant]
     Active Substance: FLUTICASONE PROPIONATE
  33. ACETYLCYSTEINE [Concomitant]
     Active Substance: ACETYLCYSTEINE
  34. FLONASE ALLERGY RELIEF [Concomitant]
     Active Substance: FLUTICASONE PROPIONATE

REACTIONS (4)
  - Facial pain [Unknown]
  - Eye discharge [Unknown]
  - Eye pain [Unknown]
  - Granuloma [Unknown]
